FAERS Safety Report 25099040 (Version 1)
Quarter: 2025Q1

REPORT INFORMATION
  Report Type: Spontaneous
  Country: US (occurrence: US)
  Receive Date: 20250320
  Receipt Date: 20250320
  Transmission Date: 20250409
  Serious: Yes (Hospitalization)
  Sender: JOHNSON AND JOHNSON
  Company Number: US-JNJFOC-20250334121

PATIENT
  Sex: Male

DRUGS (1)
  1. TALQUETAMAB [Suspect]
     Active Substance: TALQUETAMAB
     Indication: Product used for unknown indication

REACTIONS (14)
  - Pneumonia [Recovered/Resolved]
  - Muscular weakness [Unknown]
  - Cyst [Unknown]
  - Onychomadesis [Not Recovered/Not Resolved]
  - Dry skin [Not Recovered/Not Resolved]
  - Decreased appetite [Recovering/Resolving]
  - Dry mouth [Recovering/Resolving]
  - Dysphagia [Recovering/Resolving]
  - Rash [Not Recovered/Not Resolved]
  - Pruritus [Not Recovered/Not Resolved]
  - Onychalgia [Not Recovered/Not Resolved]
  - Pain in extremity [Not Recovered/Not Resolved]
  - T-lymphocyte count decreased [Unknown]
  - Pain in extremity [Unknown]
